FAERS Safety Report 12262922 (Version 1)
Quarter: 2016Q2

REPORT INFORMATION
  Report Type: Spontaneous
  Country: US (occurrence: US)
  Receive Date: 20160413
  Receipt Date: 20160413
  Transmission Date: 20160815
  Serious: No
  Sender: FDA-Public Use
  Company Number: US-WARNER CHILCOTT, LLC-1050511

PATIENT
  Age: 63 Year
  Sex: Female
  Weight: 31.82 kg

DRUGS (7)
  1. PROZAC [Concomitant]
     Active Substance: FLUOXETINE HYDROCHLORIDE
  2. PILOCARPINE. [Concomitant]
     Active Substance: PILOCARPINE
  3. RITALIN [Concomitant]
     Active Substance: METHYLPHENIDATE HYDROCHLORIDE
  4. ANTIDEPRESSANTS [Concomitant]
     Active Substance: UNSPECIFIED INGREDIENT
  5. ABILIFY [Concomitant]
     Active Substance: ARIPIPRAZOLE
  6. FEMRING [Suspect]
     Active Substance: ESTRADIOL ACETATE
     Indication: VULVOVAGINAL DRYNESS
     Route: 067
     Dates: start: 20150807
  7. BUPROPION HCL [Concomitant]
     Active Substance: BUPROPION HYDROCHLORIDE

REACTIONS (3)
  - Vulvovaginal dryness [Not Recovered/Not Resolved]
  - Depressed mood [Not Recovered/Not Resolved]
  - Drug ineffective [Not Recovered/Not Resolved]

NARRATIVE: CASE EVENT DATE: 20151108
